FAERS Safety Report 13335943 (Version 1)
Quarter: 2017Q1

REPORT INFORMATION
  Report Type: Spontaneous
  Country: FR (occurrence: FR)
  Receive Date: 20170314
  Receipt Date: 20170314
  Transmission Date: 20170428
  Serious: Yes (Other)
  Sender: FDA-Public Use
  Company Number: FR-ARIAD-2017FR007898

PATIENT

DRUGS (2)
  1. ICLUSIG [Suspect]
     Active Substance: PONATINIB
     Indication: CHRONIC MYELOID LEUKAEMIA
     Dosage: ALTERNATE 15/30MG PER DAY
     Route: 048
     Dates: start: 201107, end: 201702
  2. ICLUSIG [Suspect]
     Active Substance: PONATINIB
     Dosage: ALTERNATE 15/30MG PER DAY
     Route: 048
     Dates: start: 201107, end: 201702

REACTIONS (2)
  - Cerebrovascular accident [Unknown]
  - Carotid arteriosclerosis [Unknown]

NARRATIVE: CASE EVENT DATE: 201702
